FAERS Safety Report 5911642-6 (Version None)
Quarter: 2008Q4

REPORT INFORMATION
  Report Type: 
  Country: None (occurrence: None)
  Receive Date: 20081003
  Receipt Date: 20080929
  Transmission Date: 20090506
  Serious: Yes (Hospitalization)
  Sender: FDA-Public Use
  Company Number: 2008SP017515

PATIENT
  Sex: Female

DRUGS (1)
  1. NASONEX [Suspect]
     Indication: MULTIPLE ALLERGIES
     Dosage: NAS

REACTIONS (7)
  - CONDITION AGGRAVATED [None]
  - DISTURBANCE IN ATTENTION [None]
  - FEELING ABNORMAL [None]
  - FOOD ALLERGY [None]
  - MALAISE [None]
  - MEDICATION ERROR [None]
  - SKIN ULCER [None]
